FAERS Safety Report 7236614-3 (Version None)
Quarter: 2011Q1

REPORT INFORMATION
  Report Type: 
  Country: None (occurrence: None)
  Receive Date: 20110112
  Receipt Date: 20101227
  Transmission Date: 20110831
  Serious: Yes (Other)
  Sender: FDA-Public Use
  Company Number: CIO10018633

PATIENT
  Age: 29 Year
  Sex: Male

DRUGS (1)
  1. OXYMETAZOLINE HYDROCHLORIDE SPRAY [Suspect]
     Indication: NASAL CONGESTION
     Dosage: EVERY 2 HR, INTRANASAL

REACTIONS (8)
  - INAPPROPRIATE SCHEDULE OF DRUG ADMINISTRATION [None]
  - INCORRECT DRUG ADMINISTRATION DURATION [None]
  - NASAL TURBINATE ABNORMALITY [None]
  - DRUG EFFECT DECREASED [None]
  - OPERATIVE HAEMORRHAGE [None]
  - NASAL CONGESTION [None]
  - NASAL OEDEMA [None]
  - NASAL SEPTUM DISORDER [None]
